FAERS Safety Report 17098886 (Version 3)
Quarter: 2020Q2

REPORT INFORMATION
  Report Type: Spontaneous
  Country: US (occurrence: US)
  Receive Date: 20191202
  Receipt Date: 20200506
  Transmission Date: 20200713
  Serious: No
  Sender: FDA-Public Use
  Company Number: US-PFIZER INC-2018492716

PATIENT
  Age: 45 Year
  Sex: Female
  Weight: 90.72 kg

DRUGS (1)
  1. XELJANZ XR [Suspect]
     Active Substance: TOFACITINIB CITRATE
     Indication: RHEUMATOID ARTHRITIS
     Dosage: 11 MG, 1X/DAY (11MG EVERY DAY ONCE A DAY BY MOUTH)
     Route: 048

REACTIONS (6)
  - Fall [Unknown]
  - Migraine [Unknown]
  - Malaise [Unknown]
  - Somnolence [Unknown]
  - Mobility decreased [Unknown]
  - Pain [Unknown]
